FAERS Safety Report 7111781-0 (Version None)
Quarter: 2010Q4

REPORT INFORMATION
  Report Type: 
  Country: None (occurrence: None)
  Receive Date: 20101119
  Receipt Date: 20101011
  Transmission Date: 20110411
  Serious: Yes (Hospitalization)
  Sender: FDA-Public Use
  Company Number: DE-AMGEN-DEUCT2010000051

PATIENT

DRUGS (3)
  1. ENBREL [Suspect]
     Indication: ANKYLOSING SPONDYLITIS
     Dosage: 25 MG, 2 TIMES/WK
     Route: 058
     Dates: start: 20050909
  2. VOLTAREN [Concomitant]
     Dosage: IF NECESSARY
     Route: 048
  3. ARCOXIA [Concomitant]

REACTIONS (1)
  - CERVICAL DYSPLASIA [None]
